FAERS Safety Report 21324930 (Version 1)
Quarter: 2022Q3

REPORT INFORMATION
  Report Type: Report from Study
  Country: TR (occurrence: TR)
  Receive Date: 20220912
  Receipt Date: 20220912
  Transmission Date: 20221026
  Serious: Yes (Hospitalization)
  Sender: FDA-Public Use
  Company Number: TR-NOVARTISPH-NVSC2019TR106161

PATIENT
  Age: 57 Year
  Sex: Male

DRUGS (6)
  1. DOCETAXEL [Suspect]
     Active Substance: DOCETAXEL
     Indication: Non-small cell lung cancer
     Dosage: 75 MG/M2, Q3W
     Route: 042
     Dates: start: 20191101, end: 20191101
  2. DOCETAXEL [Suspect]
     Active Substance: DOCETAXEL
     Dosage: 55 MG/M2
     Route: 042
     Dates: start: 20191122, end: 20191122
  3. BUTAMIRATE CITRATE [Concomitant]
     Active Substance: BUTAMIRATE CITRATE
     Indication: Cough
     Dosage: UNK
     Route: 065
     Dates: start: 20190726
  4. FENTANYL [Concomitant]
     Active Substance: FENTANYL
     Indication: Arthralgia
     Dosage: 50 UG
     Route: 065
     Dates: start: 20190923
  5. DICLOFENAC SODIUM [Concomitant]
     Active Substance: DICLOFENAC SODIUM
     Indication: Arthralgia
     Dosage: 100 MG
     Route: 065
     Dates: start: 20191101
  6. NYSTATIN [Concomitant]
     Active Substance: NYSTATIN
     Indication: Constipation
     Dosage: 10000 IU
     Route: 065
     Dates: start: 20191101

REACTIONS (4)
  - Haemoptysis [Recovered/Resolved]
  - Febrile neutropenia [Recovered/Resolved]
  - Pneumonia [Recovering/Resolving]
  - Respiratory failure [Recovered/Resolved]

NARRATIVE: CASE EVENT DATE: 20191109
